FAERS Safety Report 6683882-2 (Version None)
Quarter: 2010Q2

REPORT INFORMATION
  Report Type: 
  Country: None (occurrence: None)
  Receive Date: 20100416
  Receipt Date: 20100407
  Transmission Date: 20101027
  Serious: Yes (Hospitalization)
  Sender: FDA-Public Use
  Company Number: IT-JNJFOC-20100302994

PATIENT
  Sex: Male

DRUGS (2)
  1. RISPERDAL [Suspect]
     Indication: DRUG USE FOR UNKNOWN INDICATION
     Route: 048
  2. RISPERDAL [Suspect]
     Dosage: 2 MG TABLETS
     Route: 048

REACTIONS (5)
  - BRADYPHRENIA [None]
  - DRUG ABUSE [None]
  - DRUG INEFFECTIVE [None]
  - HYPOKINESIA [None]
  - INTENTIONAL OVERDOSE [None]
